FAERS Safety Report 4903516-4 (Version None)
Quarter: 2006Q1

REPORT INFORMATION
  Report Type: 
  Country: None (occurrence: None)
  Receive Date: 20060203
  Receipt Date: 20060125
  Transmission Date: 20060701
  Serious: Yes (Death, Hospitalization, Other)
  Sender: FDA-Public Use
  Company Number: 2005-12-1269

PATIENT
  Age: 48 Year
  Sex: Male
  Weight: 135 kg

DRUGS (9)
  1. PEG-INTRON (PEGINTERFERON ALFA-2B) INJECTABLE [Suspect]
     Indication: HEPATITIS C
     Dosage: 150 UG QW SUBCUTANEOUS
     Route: 058
     Dates: start: 20050713, end: 20051201
  2. REBETOL [Suspect]
     Indication: HEPATITIS C
     Dosage: 1200-1000 MG ORAL; 1200 MG QD ORAL; 1000 MG QD ORAL
     Route: 048
     Dates: start: 20050713, end: 20050718
  3. REBETOL [Suspect]
     Indication: HEPATITIS C
     Dosage: 1200-1000 MG ORAL; 1200 MG QD ORAL; 1000 MG QD ORAL
     Route: 048
     Dates: start: 20050713, end: 20051201
  4. REBETOL [Suspect]
     Indication: HEPATITIS C
     Dosage: 1200-1000 MG ORAL; 1200 MG QD ORAL; 1000 MG QD ORAL
     Route: 048
     Dates: start: 20050718, end: 20051201
  5. IBUPROFEN [Suspect]
     Indication: ARTHRALGIA
     Dosage: 600 MG Q 12 H
     Dates: start: 20051006, end: 20051201
  6. TRAMADOL [Concomitant]
  7. DIAZEPAM [Concomitant]
  8. ACETYLSALICYLIC ACID SRT [Concomitant]
  9. OMEPRAZOLE [Concomitant]

REACTIONS (14)
  - ARTHRALGIA [None]
  - BLINDNESS [None]
  - CARDIO-RESPIRATORY ARREST [None]
  - DIZZINESS [None]
  - DYSSTASIA [None]
  - GASTROENTERITIS [None]
  - HAEMOGLOBIN DECREASED [None]
  - HYPOKALAEMIA [None]
  - INFLUENZA LIKE ILLNESS [None]
  - MALAISE [None]
  - METABOLIC ACIDOSIS [None]
  - PANCREATITIS [None]
  - PARAESTHESIA [None]
  - WEIGHT DECREASED [None]
